FAERS Safety Report 6634904-6 (Version None)
Quarter: 2010Q1

REPORT INFORMATION
  Report Type: 
  Country: None (occurrence: None)
  Receive Date: 20100315
  Receipt Date: 20100303
  Transmission Date: 20100710
  Serious: Yes (Other)
  Sender: FDA-Public Use
  Company Number: GB-PFIZER INC-2010028019

PATIENT
  Age: 8 Month
  Sex: Female

DRUGS (1)
  1. PHENYTOIN SODIUM CAP [Suspect]
     Dosage: 40MG AT NIGHT, 30MG IN AM AND AFTERNOON

REACTIONS (3)
  - ANTICONVULSANT DRUG LEVEL INCREASED [None]
  - STRABISMUS [None]
  - URINARY TRACT INFECTION [None]
